FAERS Safety Report 8116657-8 (Version None)
Quarter: 2012Q1

REPORT INFORMATION
  Report Type: 
  Country: None (occurrence: None)
  Receive Date: 20120206
  Receipt Date: 20120126
  Transmission Date: 20120608
  Serious: Yes (Other)
  Sender: FDA-Public Use
  Company Number: PHHY2012FR007477

PATIENT
  Age: 18 Year
  Sex: Male

DRUGS (3)
  1. NEORAL [Suspect]
  2. MYCOPHENOLATE MOFETIL (CELLCEPT) [Concomitant]
  3. SANDIMMUNE [Suspect]

REACTIONS (1)
  - CHOLESTASIS [None]
